FAERS Safety Report 7085249-4 (Version None)
Quarter: 2010Q4

REPORT INFORMATION
  Report Type: 
  Country: None (occurrence: None)
  Receive Date: 20101105
  Receipt Date: 20101028
  Transmission Date: 20110411
  Serious: Yes (Death)
  Sender: FDA-Public Use
  Company Number: JP-GENZYME-THYM-1001992

PATIENT
  Sex: Female
  Weight: 47 kg

DRUGS (6)
  1. THYMOGLOBULIN [Suspect]
     Indication: APLASTIC ANAEMIA
     Dosage: 160 MG/DAY, QD
     Route: 042
     Dates: start: 20091116, end: 20091120
  2. SULFAMETHOPRIM [Concomitant]
     Indication: INFECTION PROPHYLAXIS
     Dosage: UNK
     Dates: start: 20091013, end: 20091121
  3. ITRACONAZOLE [Concomitant]
     Indication: INFECTION PROPHYLAXIS
     Dosage: UNK
     Dates: start: 20091013, end: 20091121
  4. METHIMAZOLE [Concomitant]
     Indication: HYPOTHYROIDISM
     Dosage: UNK
     Dates: start: 20091022, end: 20091121
  5. VERAPAMIL [Concomitant]
     Indication: ATRIAL FIBRILLATION
     Dosage: UNK
     Dates: start: 20091022, end: 20091211
  6. PROPRANOLOL HYDROCHLORIDE [Concomitant]
     Indication: ATRIAL FIBRILLATION
     Dosage: UNK
     Dates: start: 20091022, end: 20091211

REACTIONS (2)
  - PNEUMONIA [None]
  - RESPIRATORY FAILURE [None]
